FAERS Safety Report 9061587 (Version 1)
Quarter: 2013Q1

REPORT INFORMATION
  Report Type: Spontaneous
  Country: US (occurrence: None)
  Receive Date: 20130208
  Receipt Date: 20130208
  Transmission Date: 20140127
  Serious: Yes (Other)
  Sender: FDA-Public Use
  Company Number: None

PATIENT
  Age: 21 Year
  Sex: Female
  Weight: 63.5 kg

DRUGS (2)
  1. ACETAMINOPHEN [Suspect]
     Indication: PAIN
     Dosage: 2 GELCAPS  ONCE PO
     Dates: start: 20130205, end: 20130205
  2. ACETAMINOPHEN [Suspect]
     Indication: INFLUENZA
     Dosage: 2 GELCAPS  ONCE PO
     Dates: start: 20130205, end: 20130205

REACTIONS (1)
  - Urticaria [None]
